FAERS Safety Report 19654359 (Version 1)
Quarter: 2021Q3

REPORT INFORMATION
  Report Type: Other
  Country: US (occurrence: US)
  Receive Date: 20210804
  Receipt Date: 20210804
  Transmission Date: 20211014
  Serious: Yes (Hospitalization)
  Sender: FDA-Public Use
  Company Number: US-ROCHE-2877437

PATIENT
  Sex: Female

DRUGS (17)
  1. NPH INSULIN [Concomitant]
     Active Substance: INSULIN BEEF
     Dosage: INSULIN PEN NEEDLE (BD PEN NEEDLE NANO U/F) 32 G X 4 MM MISC
  2. PREDNISONE. [Concomitant]
     Active Substance: PREDNISONE
  3. FAMOTIDINE. [Concomitant]
     Active Substance: FAMOTIDINE
  4. LEVOTHYROXINE. [Concomitant]
     Active Substance: LEVOTHYROXINE
  5. ACTEMRA [Suspect]
     Active Substance: TOCILIZUMAB
  6. CALCIUM CARBONATE. [Concomitant]
     Active Substance: CALCIUM CARBONATE
     Dosage: 500 CA
  7. FERROUS SULFATE. [Concomitant]
     Active Substance: FERROUS SULFATE
     Dosage: 65 FE
  8. ACTEMRA [Suspect]
     Active Substance: TOCILIZUMAB
     Indication: GIANT CELL ARTERITIS
     Dosage: INJECT 162MG (0.9ML) SUBCUTANEOUSLY EVERY WEEK
     Route: 058
  9. FUROSEMIDE. [Concomitant]
     Active Substance: FUROSEMIDE
  10. METOPROLOL SUCCINATE. [Concomitant]
     Active Substance: METOPROLOL SUCCINATE
     Dosage: 25 MG TABLET XL
  11. ACTEMRA [Suspect]
     Active Substance: TOCILIZUMAB
  12. ASPIRIN. [Concomitant]
     Active Substance: ASPIRIN
     Dosage: DR TABLET
  13. ELIQUIS [Concomitant]
     Active Substance: APIXABAN
  14. ATORVASTATIN [Concomitant]
     Active Substance: ATORVASTATIN
  15. NPH INSULIN [Concomitant]
     Active Substance: INSULIN BEEF
     Dosage: 100 UNIT/ML, SUSPENSION PEN INJECTOR INJECTION
  16. LISINOPRIL. [Concomitant]
     Active Substance: LISINOPRIL
  17. METFORMIN [Concomitant]
     Active Substance: METFORMIN HYDROCHLORIDE

REACTIONS (1)
  - Cerebrovascular accident [Unknown]
